FAERS Safety Report 12445412 (Version 1)
Quarter: 2016Q2

REPORT INFORMATION
  Report Type: Spontaneous
  Country: US (occurrence: US)
  Receive Date: 20160608
  Receipt Date: 20160608
  Transmission Date: 20160815
  Serious: Yes (Other)
  Sender: FDA-Public Use
  Company Number: US-JUBILANT GENERICS LIMITED-1053477

PATIENT
  Sex: Female

DRUGS (1)
  1. SPIRONOLACTONE. [Suspect]
     Active Substance: SPIRONOLACTONE

REACTIONS (1)
  - Thyroid cancer [Unknown]

NARRATIVE: CASE EVENT DATE: 20160525
